FAERS Safety Report 23190148 (Version 1)
Quarter: 2023Q4

REPORT INFORMATION
  Report Type: Report from Study
  Country: CA (occurrence: CA)
  Receive Date: 20231116
  Receipt Date: 20231116
  Transmission Date: 20240110
  Serious: Yes (Death, Other)
  Sender: FDA-Public Use
  Company Number: CA-JNJFOC-20230836098

PATIENT
  Age: 87 Year
  Sex: Male
  Weight: 70 kg

DRUGS (4)
  1. REMICADE [Suspect]
     Active Substance: INFLIXIMAB
     Indication: Ankylosing spondylitis
     Dosage: PLANNING TO INCREASE THE REMICADE FREQUENCY TO Q6 WEEKS
     Route: 042
     Dates: start: 20160104
  2. REMICADE [Suspect]
     Active Substance: INFLIXIMAB
     Route: 042
     Dates: start: 20230817, end: 20231002
  3. METHOTREXATE [Suspect]
     Active Substance: METHOTREXATE
     Indication: Pain in extremity
     Route: 048
     Dates: start: 202307
  4. METHOTREXATE [Suspect]
     Active Substance: METHOTREXATE
     Indication: Ankylosing spondylitis
     Route: 048
     Dates: start: 2023

REACTIONS (6)
  - Death [Fatal]
  - Weight decreased [Not Recovered/Not Resolved]
  - Taste disorder [Unknown]
  - Pain in extremity [Not Recovered/Not Resolved]
  - Nausea [Unknown]
  - Therapeutic product effect incomplete [Unknown]

NARRATIVE: CASE EVENT DATE: 20230627
